FAERS Safety Report 5488742-0 (Version None)
Quarter: 2007Q4

REPORT INFORMATION
  Report Type: 
  Country: None (occurrence: None)
  Receive Date: 20071017
  Receipt Date: 20071010
  Transmission Date: 20080405
  Serious: Yes (Other)
  Sender: FDA-Public Use
  Company Number: US-ROXANE LABORATORIES, INC-2007-BP-22457RO

PATIENT
  Age: 50 Year
  Sex: Male

DRUGS (13)
  1. CYCLOPHOSPHAMIDE [Suspect]
     Indication: NON-HODGKIN'S LYMPHOMA STAGE IV
  2. CYCLOPHOSPHAMIDE [Suspect]
     Indication: BONE MARROW CONDITIONING REGIMEN
     Dates: start: 20050716
  3. PREDNISONE [Suspect]
     Indication: NON-HODGKIN'S LYMPHOMA STAGE IV
  4. ADRIAMYCIN PFS [Suspect]
     Indication: NON-HODGKIN'S LYMPHOMA STAGE IV
  5. VINCRISTINE [Suspect]
     Indication: NON-HODGKIN'S LYMPHOMA STAGE IV
  6. IODINE I-131 THERAPEUTIC SOLUTION [Suspect]
     Indication: NON-HODGKIN'S LYMPHOMA STAGE IV
     Dates: start: 20030501
  7. TOSITUMOMAB [Suspect]
     Indication: NON-HODGKIN'S LYMPHOMA STAGE IV
     Dates: start: 20030501
  8. LENALIDOMIDE [Suspect]
     Indication: PLATELET COUNT ABNORMAL
     Dates: start: 20060720
  9. RITUXIMAB [Suspect]
     Indication: DRUG INEFFECTIVE
     Dates: start: 20041101
  10. IFOSFAMIDE [Suspect]
     Indication: DRUG INEFFECTIVE
     Dates: start: 20041101
  11. CARBOPLATIN [Suspect]
     Indication: DRUG INEFFECTIVE
     Dates: start: 20041101
  12. ETOPOSIDE [Suspect]
     Indication: DRUG INEFFECTIVE
     Dates: start: 20041101
  13. NEUPOGEN [Suspect]

REACTIONS (2)
  - DRUG INEFFECTIVE [None]
  - MYELODYSPLASTIC SYNDROME [None]
